FAERS Safety Report 5134465-7 (Version None)
Quarter: 2006Q4

REPORT INFORMATION
  Report Type: 
  Country: None (occurrence: None)
  Receive Date: 20061019
  Receipt Date: 20061004
  Transmission Date: 20070319
  Serious: Yes (Death, Hospitalization)
  Sender: FDA-Public Use
  Company Number: REM_00276_2006

PATIENT
  Age: 57 Year
  Sex: Female
  Weight: 66.4 kg

DRUGS (3)
  1. REMODULIN [Suspect]
     Indication: PULMONARY HYPERTENSION
     Dates: start: 20050125, end: 20050125
  2. REMODULIN [Suspect]
     Indication: SCLERODERMA
     Dates: start: 20050125, end: 20050125
  3. FLOLAN [Concomitant]

REACTIONS (25)
  - AORTIC STENOSIS [None]
  - AORTIC VALVE INCOMPETENCE [None]
  - CARDIAC ARREST [None]
  - CARDIAC VALVE VEGETATION [None]
  - CATHETER SITE INFECTION [None]
  - CONDITION AGGRAVATED [None]
  - CYANOSIS [None]
  - DISSEMINATED INTRAVASCULAR COAGULATION [None]
  - DYSPNOEA [None]
  - FATIGUE [None]
  - HEPARIN-INDUCED THROMBOCYTOPENIA [None]
  - HEPATIC CONGESTION [None]
  - HYPOTENSION [None]
  - LOSS OF CONSCIOUSNESS [None]
  - MENTAL STATUS CHANGES [None]
  - MITRAL VALVE CALCIFICATION [None]
  - MITRAL VALVE INCOMPETENCE [None]
  - MITRAL VALVE STENOSIS [None]
  - STAPHYLOCOCCAL BACTERAEMIA [None]
  - TACHYCARDIA [None]
  - THROMBOSIS [None]
  - TRANSAMINASES INCREASED [None]
  - TRICUSPID VALVE INCOMPETENCE [None]
  - VENTRICULAR HYPERTROPHY [None]
  - VENTRICULAR TACHYCARDIA [None]
